FAERS Safety Report 19720826 (Version 1)
Quarter: 2021Q3

REPORT INFORMATION
  Report Type: Spontaneous
  Country: US (occurrence: US)
  Receive Date: 20210819
  Receipt Date: 20210819
  Transmission Date: 20211014
  Serious: Yes (Other)
  Sender: FDA-Public Use
  Company Number: None

PATIENT
  Age: 56 Year
  Sex: Female
  Weight: 60.3 kg

DRUGS (9)
  1. LIPITOR [Concomitant]
     Active Substance: ATORVASTATIN CALCIUM
  2. ASPIRIN. [Concomitant]
     Active Substance: ASPIRIN
  3. BUPRENORPHINE. [Concomitant]
     Active Substance: BUPRENORPHINE
  4. CARVEDILOL. [Concomitant]
     Active Substance: CARVEDILOL
  5. MULTIVITAMIN [Concomitant]
     Active Substance: VITAMINS
  6. CLOPIDOGREL [Concomitant]
     Active Substance: CLOPIDOGREL BISULFATE
  7. NITROFURANTOIN MONOHYDRATE MACROCRYSTALS [Suspect]
     Active Substance: NITROFURANTOIN\NITROFURANTOIN MONOHYDRATE
     Indication: URINARY TRACT INFECTION
     Dosage: ?          QUANTITY:14 CAPSULE(S);?
     Route: 048
     Dates: start: 20210815, end: 20210817
  8. COENZYME Q10 [Concomitant]
     Active Substance: DIETARY SUPPLEMENT\UBIDECARENONE
  9. GABAPENTIN. [Concomitant]
     Active Substance: GABAPENTIN

REACTIONS (7)
  - Pain in extremity [None]
  - Abdominal pain upper [None]
  - Insomnia [None]
  - Back pain [None]
  - Decreased appetite [None]
  - Nausea [None]
  - Pollakiuria [None]

NARRATIVE: CASE EVENT DATE: 20210816
